FAERS Safety Report 18123409 (Version 1)
Quarter: 2020Q3

REPORT INFORMATION
  Report Type: Spontaneous
  Country: US (occurrence: US)
  Receive Date: 20200807
  Receipt Date: 20200807
  Transmission Date: 20201103
  Serious: No
  Sender: FDA-Public Use
  Company Number: US-AKRON, INC.-2088278

PATIENT
  Sex: Female

DRUGS (1)
  1. LACTULOSE SYRUP [Suspect]
     Active Substance: LACTULOSE
     Indication: CONSTIPATION

REACTIONS (1)
  - Vomiting [Recovered/Resolved]
